FAERS Safety Report 22400137 (Version 1)
Quarter: 2023Q2

REPORT INFORMATION
  Report Type: Spontaneous
  Country: GB (occurrence: GB)
  Receive Date: 20230602
  Receipt Date: 20230602
  Transmission Date: 20230721
  Serious: Yes (Other)
  Sender: FDA-Public Use
  Company Number: None

PATIENT
  Age: 56 Year
  Sex: Female
  Weight: 83 kg

DRUGS (14)
  1. ACLIDINIUM BROMIDE\FORMOTEROL FUMARATE [Suspect]
     Active Substance: ACLIDINIUM BROMIDE\FORMOTEROL FUMARATE
     Indication: Product used for unknown indication
     Dosage: 1, 340MICROGRAMS/DOSE / 12MICROGRAMS/DOSE
     Route: 055
     Dates: start: 20230515
  2. ACLIDINIUM BROMIDE\FORMOTEROL FUMARATE [Suspect]
     Active Substance: ACLIDINIUM BROMIDE\FORMOTEROL FUMARATE
     Indication: Chronic obstructive pulmonary disease
  3. ANADIN [Concomitant]
     Indication: Product used for unknown indication
     Dosage: TAKE 1 OR 2, 3 TIMES/DAY
     Dates: start: 20230428, end: 20230428
  4. CODEINE PHOSPHATE [Concomitant]
     Active Substance: CODEINE PHOSPHATE
     Indication: Product used for unknown indication
     Dosage: TAKE ONE OR TWO TABLETS FOUR TIMES A DAY WHEN R...
     Dates: start: 20230310, end: 20230324
  5. DEXAMETHASONE [Concomitant]
     Active Substance: DEXAMETHASONE
     Indication: Product used for unknown indication
     Dosage: 4
     Dates: start: 20230220
  6. ESCITALOPRAM [Concomitant]
     Active Substance: ESCITALOPRAM OXALATE
     Indication: Product used for unknown indication
     Dosage: 1
     Dates: start: 20220615
  7. IBUPROFEN [Concomitant]
     Active Substance: IBUPROFEN
     Indication: Pain in extremity
     Dosage: 1, APPLY
     Route: 061
     Dates: start: 20230330, end: 20230427
  8. LEVETIRACETAM [Concomitant]
     Active Substance: LEVETIRACETAM
     Indication: Product used for unknown indication
     Dosage: 1
     Dates: start: 20230405
  9. METOCLOPRAMIDE [Concomitant]
     Active Substance: METOCLOPRAMIDE
     Indication: Product used for unknown indication
     Dosage: 1
     Dates: start: 20230510
  10. MORPHINE SULFATE [Concomitant]
     Active Substance: MORPHINE SULFATE
     Indication: Product used for unknown indication
     Dosage: TAKE HALF TO ONE 5ML SPOONFUL UP TO FOUR TIMES ...
     Dates: start: 20230405, end: 20230503
  11. OMEPRAZOLE [Concomitant]
     Active Substance: OMEPRAZOLE
     Indication: Product used for unknown indication
     Dosage: TAKE 1 ONCE OR TWICE DAILY AS REQUIRED
     Dates: start: 20230220
  12. ACETAMINOPHEN [Concomitant]
     Active Substance: ACETAMINOPHEN
     Indication: Headache
     Dosage: 2
     Dates: start: 20230405
  13. ALBUTEROL [Concomitant]
     Active Substance: ALBUTEROL
     Indication: Dyspnoea
     Dosage: INHALE ONE OR TWO DOSES UP TO FOUR TIMES A DAY AS NEEDED
     Route: 055
     Dates: start: 20230519
  14. SUMATRIPTAN [Concomitant]
     Active Substance: SUMATRIPTAN
     Indication: Product used for unknown indication
     Dosage: 1, AS DIRECTED
     Dates: start: 20230428

REACTIONS (3)
  - Paraesthesia oral [Recovered/Resolved]
  - Swollen tongue [Recovered/Resolved]
  - Headache [Recovered/Resolved]
